FAERS Safety Report 6814937-7 (Version None)
Quarter: 2010Q3

REPORT INFORMATION
  Report Type: 
  Country: None (occurrence: None)
  Receive Date: 20100702
  Receipt Date: 20100625
  Transmission Date: 20110219
  Serious: Yes (Death, Other)
  Sender: FDA-Public Use
  Company Number: GB-MILLENNIUM PHARMACEUTICALS, INC.-2010-02652

PATIENT

DRUGS (12)
  1. VELCADE [Suspect]
     Indication: MULTIPLE MYELOMA
     Dosage: 2.1 MG, UNK
     Route: 042
     Dates: start: 20091223, end: 20100408
  2. DEXAMETHASONE [Concomitant]
     Indication: PAIN
     Dosage: 2 MG, UNK
     Dates: start: 20100328
  3. ACYCLOVIR [Concomitant]
     Indication: ANTIVIRAL PROPHYLAXIS
     Dosage: 400 MG, UNK
  4. ENOXAPARIN [Concomitant]
     Indication: THROMBOSIS PROPHYLAXIS
     Dosage: 40 MG, UNK
  5. COTRIM [Concomitant]
     Indication: PROPHYLAXIS
     Dosage: 960 MG, UNK
  6. ALLOPURINOL [Concomitant]
     Indication: PROPHYLAXIS
     Dosage: 300 MG, UNK
  7. AMITRIPTYLINE [Concomitant]
     Indication: PAIN
     Dosage: 10 MG, UNK
  8. OMEPRAZOLE [Concomitant]
     Indication: HIATUS HERNIA
     Dosage: 20 MG, UNK
  9. ZOLEDRONIC ACID [Concomitant]
     Indication: PROPHYLAXIS
     Dosage: 4 MG, UNK
     Route: 042
  10. DOMPERIDONE [Concomitant]
     Indication: ANTIEMETIC SUPPORTIVE CARE
     Dosage: 20 MG, UNK
  11. NYSTATIN [Concomitant]
     Indication: PROPHYLAXIS
     Dosage: 1 ML, UNK
  12. GABAPENTIN [Concomitant]
     Indication: PAIN
     Dosage: 100 MG, UNK

REACTIONS (4)
  - DRUG INEFFECTIVE [None]
  - HYPERCALCAEMIA [None]
  - MULTIPLE MYELOMA [None]
  - RENAL IMPAIRMENT [None]
